FAERS Safety Report 7386910-4 (Version None)
Quarter: 2011Q1

REPORT INFORMATION
  Report Type: 
  Country: None (occurrence: None)
  Receive Date: 20110331
  Receipt Date: 20091009
  Transmission Date: 20110831
  Serious: Yes (Death, Hospitalization, Other)
  Sender: FDA-Public Use
  Company Number: US-BAYER-2011-027395

PATIENT
  Sex: Male
  Weight: 15.873 kg

DRUGS (31)
  1. TRASYLOL [Suspect]
     Indication: SYSTEMIC-PULMONARY ARTERY SHUNT
     Dosage: 1 ML, INITIAL TEST DOSE
     Route: 042
     Dates: start: 20070725
  2. RED BLOOD CELLS [Concomitant]
     Dosage: 1 U, UNK
     Dates: start: 20070725
  3. CAPTOPRIL [Concomitant]
     Dosage: UNK
     Dates: start: 20000911
  4. PROTAMINE SULFATE [Concomitant]
     Dosage: UNK
     Route: 042
     Dates: start: 20070725, end: 20070725
  5. CLARITIN [Concomitant]
  6. PRIMACOR [Concomitant]
     Dosage: UNK
     Route: 042
     Dates: start: 20070725, end: 20070725
  7. FRESH FROZEN PLASMA [Concomitant]
     Dosage: 280 ML, UNK
     Dates: start: 20070725
  8. COUMADIN [Concomitant]
     Dosage: 1 MG/M,W,F
     Route: 048
  9. PHENYTOIN [Concomitant]
     Dosage: UNK
     Route: 042
     Dates: start: 20000912
  10. CLINDAMYCIN [Concomitant]
     Dosage: 100 MG, UNK
     Route: 042
     Dates: start: 20050215
  11. ANCEF [Concomitant]
     Dosage: 425 MG, UNK
     Route: 042
     Dates: start: 20070725, end: 20070725
  12. ENALAPRIL MALEATE [Concomitant]
     Dosage: 2.5 MG, BID
     Dates: start: 19990101, end: 20070101
  13. FLOVENT [Concomitant]
  14. ZONEGRAN [Concomitant]
     Dosage: UNK
     Dates: start: 20010816
  15. PLATELETS [Concomitant]
     Dosage: 60
     Dates: start: 20070725
  16. BLOOD AND RELATED PRODUCTS [Concomitant]
     Dosage: 300 ML, UNK
     Dates: start: 20070725
  17. BACLOFEN [Concomitant]
     Dosage: 5 MG, BID
     Route: 048
  18. EPINEPHRINE [Concomitant]
     Dosage: UNK
     Route: 042
     Dates: start: 20000826, end: 20000826
  19. VANCOMYCIN [Concomitant]
     Dosage: UNK
     Dates: start: 20000924, end: 20000928
  20. ALDACTONE [Concomitant]
     Dosage: 5 MG, UNK
     Route: 048
     Dates: start: 20000808
  21. TRASYLOL [Suspect]
     Indication: PULMONARY ARTERY THERAPEUTIC PROCEDURE
  22. GENTAMICIN [Concomitant]
     Dosage: 700 MG, UNK
     Route: 042
     Dates: start: 20040827, end: 20040827
  23. CAPTOPRIL [Concomitant]
     Dosage: UNK
     Dates: start: 20000808
  24. LAMICTAL [Concomitant]
     Dosage: 125 MG, QD
     Route: 048
  25. UNASYN [Concomitant]
     Dosage: 750 MG, UNK
     Route: 042
     Dates: start: 20070712, end: 20070712
  26. TOPAMAX [Concomitant]
     Dosage: UNK
     Dates: start: 20010320
  27. TRASYLOL [Suspect]
     Indication: CARDIAC PACEMAKER INSERTION
     Dosage: 4 ML THEN 11.9 ML/HR CONTINUOUS
     Route: 042
     Dates: start: 20070725, end: 20070725
  28. BUDESONIDE [Concomitant]
     Route: 055
  29. KLONOPIN [Concomitant]
     Dosage: 0.25 MG, BID
     Route: 048
  30. COUMADIN [Concomitant]
     Dosage: 2MG/T,TH, S,S
     Route: 048
  31. DOPAMINE HCL [Concomitant]
     Dosage: UNK
     Route: 042
     Dates: start: 20070725, end: 20070725

REACTIONS (8)
  - INJURY [None]
  - DEATH [None]
  - MULTI-ORGAN FAILURE [None]
  - PAIN [None]
  - DEPRESSION [None]
  - RENAL FAILURE [None]
  - FEAR [None]
  - ANXIETY [None]
